FAERS Safety Report 8360460-0 (Version None)
Quarter: 2012Q2

REPORT INFORMATION
  Report Type: 
  Country: None (occurrence: None)
  Receive Date: 20120515
  Receipt Date: 20120501
  Transmission Date: 20120825
  Serious: Yes (Other)
  Sender: FDA-Public Use
  Company Number: US-VERTEX PHARMACEUTICALS INC.-AE-2012-005887

PATIENT
  Sex: Male

DRUGS (19)
  1. KALYDECO [Suspect]
     Indication: CYSTIC FIBROSIS
     Route: 048
     Dates: start: 20120326, end: 20120423
  2. SODIUM CHLORIDE CONCENTRATED INJ [Concomitant]
     Indication: CYSTIC FIBROSIS LUNG
     Dates: start: 20080101
  3. SINGULAIR [Concomitant]
     Indication: CYSTIC FIBROSIS LUNG
     Dates: start: 20020101, end: 20120209
  4. LEVAQUIN [Concomitant]
     Indication: INFECTIVE PULMONARY EXACERBATION OF CYSTIC FIBROSIS
     Dates: start: 20120309, end: 20120319
  5. VITAMAX [Concomitant]
     Indication: PANCREATIC INSUFFICIENCY
     Dates: start: 19900101
  6. GOLYTELY [Concomitant]
     Indication: CONSTIPATION
     Dates: start: 20000101
  7. MASS GAINER XXX [Concomitant]
     Indication: PANCREATIC INSUFFICIENCY
     Dates: start: 20110101
  8. CREON [Concomitant]
     Indication: PANCREATIC INSUFFICIENCY
     Dates: start: 20100101
  9. ACETAMINOPHEN [Concomitant]
     Indication: CYSTIC FIBROSIS LUNG
     Dates: start: 20110101, end: 20120229
  10. VX-809 [Suspect]
     Indication: CYSTIC FIBROSIS
     Route: 048
     Dates: start: 20120229, end: 20120423
  11. PRILOSEC [Concomitant]
     Indication: GASTROOESOPHAGEAL REFLUX DISEASE
     Dates: start: 20030101
  12. ALBUTEROL [Concomitant]
     Indication: INFECTIVE PULMONARY EXACERBATION OF CYSTIC FIBROSIS
     Dates: start: 20110101
  13. BACTRIM DS [Concomitant]
     Indication: INFECTIVE PULMONARY EXACERBATION OF CYSTIC FIBROSIS
     Dates: start: 20120305, end: 20120318
  14. ALBUTEROL [Concomitant]
     Indication: CYSTIC FIBROSIS LUNG
  15. ENSURE [Concomitant]
     Indication: PANCREATIC INSUFFICIENCY
     Dates: start: 20111201
  16. ASPIRIN [Concomitant]
     Indication: INFECTIVE PULMONARY EXACERBATION OF CYSTIC FIBROSIS
     Dates: start: 20120301, end: 20120304
  17. PULMOZYME [Concomitant]
     Indication: CYSTIC FIBROSIS LUNG
     Dates: start: 20080101
  18. CIPROFLOXACIN [Concomitant]
     Indication: INFECTIVE PULMONARY EXACERBATION OF CYSTIC FIBROSIS
     Dates: start: 20120305, end: 20120305
  19. VITAMIN K TAB [Concomitant]
     Indication: INFECTIVE PULMONARY EXACERBATION OF CYSTIC FIBROSIS
     Dates: start: 20120306

REACTIONS (1)
  - BLOOD CREATINE PHOSPHOKINASE INCREASED [None]
